FAERS Safety Report 6694632-8 (Version None)
Quarter: 2010Q2

REPORT INFORMATION
  Report Type: 
  Country: None (occurrence: None)
  Receive Date: 20100420
  Receipt Date: 20100407
  Transmission Date: 20101027
  Serious: Yes (Congenital Anomaly)
  Sender: FDA-Public Use
  Company Number: 144-20484-10021176

PATIENT
  Sex: Male

DRUGS (3)
  1. INNOHEP [Suspect]
     Indication: DRUG EXPOSURE DURING PREGNANCY
     Dosage: TRANSPLACENTAL GESTATION WEEK 31 - UNTIL BIRTH
     Route: 064
  2. IRON (IRON) [Concomitant]
  3. FOLIC ACID [Concomitant]

REACTIONS (2)
  - MATERNAL DRUGS AFFECTING FOETUS [None]
  - RETROGNATHIA [None]
